FAERS Safety Report 19664411 (Version 1)
Quarter: 2021Q3

REPORT INFORMATION
  Report Type: Other
  Country: US (occurrence: US)
  Receive Date: 20210805
  Receipt Date: 20210805
  Transmission Date: 20211014
  Serious: Yes (Other)
  Sender: FDA-Public Use
  Company Number: US-APOTEX-2021AP029249

PATIENT
  Age: 66 Year
  Sex: Female

DRUGS (3)
  1. RANITIDINE TABLETS [Suspect]
     Active Substance: RANITIDINE HYDROCHLORIDE
     Indication: DYSPEPSIA
     Dosage: OTHER (DAILY UNTIL APPROX 2005, THEN OCCASIONALLY)
     Route: 065
     Dates: start: 198501, end: 201312
  2. ZANTAC [Suspect]
     Active Substance: RANITIDINE HYDROCHLORIDE
     Indication: DYSPEPSIA
     Dosage: OTHER (DAILY UNTIL APPROX 2005, THEN OCCASIONALLY)
     Route: 065
     Dates: start: 198501, end: 201312
  3. RANITIDINE. [Suspect]
     Active Substance: RANITIDINE
     Indication: DYSPEPSIA
     Dosage: OTHER (DAILY UNTIL APPROXIMATELY 2005, THEN OCCASIONALLY)
     Route: 065
     Dates: start: 198706, end: 201312

REACTIONS (1)
  - Hepatic cancer [Not Recovered/Not Resolved]

NARRATIVE: CASE EVENT DATE: 20161101
